FAERS Safety Report 5068684-5 (Version None)
Quarter: 2006Q3

REPORT INFORMATION
  Report Type: 
  Country: None (occurrence: None)
  Receive Date: 20060802
  Receipt Date: 20060213
  Transmission Date: 20061208
  Serious: Yes (Other)
  Sender: FDA-Public Use
  Company Number: US-BRISTOL-MYERS SQUIBB COMPANY-13282066

PATIENT
  Age: 73 Year
  Sex: Male
  Weight: 81 kg

DRUGS (7)
  1. COUMADIN [Suspect]
     Indication: BRADYCARDIA
     Dates: start: 20051201, end: 20051201
  2. PLAVIX [Suspect]
     Indication: PROPHYLAXIS
     Dates: start: 20050920
  3. ALTACE [Concomitant]
     Dates: start: 20050920
  4. MAXZIDE [Concomitant]
     Dates: start: 20050920
  5. TOPROL-XL [Concomitant]
     Dates: start: 20050920
  6. LIPITOR [Concomitant]
     Dates: start: 20050920
  7. ASPIRIN [Concomitant]
     Dosage: 375 MG QD (20 YEARS) THEN DISCONTINUED ON 14-OCT-2005; BABY ASPIRIN 81 MG QD SINCE 15-OCT-2005
     Dates: start: 20051015

REACTIONS (1)
  - EPISTAXIS [None]
